FAERS Safety Report 22392372 (Version 1)
Quarter: 2023Q2

REPORT INFORMATION
  Report Type: Spontaneous
  Country: FR (occurrence: FR)
  Receive Date: 20230601
  Receipt Date: 20230601
  Transmission Date: 20230722
  Serious: Yes (Disabling, Other)
  Sender: FDA-Public Use
  Company Number: FR-SANOFI-01612323

PATIENT
  Age: 34 Year
  Sex: Male

DRUGS (1)
  1. SABRIL [Suspect]
     Active Substance: VIGABATRIN
     Indication: Partial seizures
     Dosage: 3000 MG, DOSAGE 3000MG/ DAY (IN 3 DOSES)
     Route: 065

REACTIONS (2)
  - Disability [Unknown]
  - Inappropriate schedule of product administration [Unknown]
